FAERS Safety Report 23241512 (Version 2)
Quarter: 2023Q4

REPORT INFORMATION
  Report Type: Spontaneous
  Country: ES (occurrence: ES)
  Receive Date: 20231129
  Receipt Date: 20231205
  Transmission Date: 20240110
  Serious: Yes (Other)
  Sender: FDA-Public Use
  Company Number: ES-MYLANLABS-2023M1123429

PATIENT
  Sex: Female

DRUGS (2)
  1. LETROZOLE [Suspect]
     Active Substance: LETROZOLE
     Indication: Product used for unknown indication
     Dosage: 51 CYCLES OF TREATMENT
     Route: 065
     Dates: start: 201901, end: 202304
  2. PALBOCICLIB [Suspect]
     Active Substance: PALBOCICLIB
     Indication: Product used for unknown indication
     Dosage: 51 CYCLES OF TREATMENT
     Route: 065
     Dates: start: 201901, end: 202304

REACTIONS (2)
  - Neutropenia [Unknown]
  - Anaemia [Unknown]
